FAERS Safety Report 10740353 (Version 1)
Quarter: 2015Q1

REPORT INFORMATION
  Report Type: Report from Study
  Country: US (occurrence: US)
  Receive Date: 20150127
  Receipt Date: 20150127
  Transmission Date: 20150721
  Serious: Yes (Hospitalization)
  Sender: FDA-Public Use
  Company Number: US-BIOGENIDEC-2015BI008633

PATIENT
  Age: 43 Year
  Sex: Male

DRUGS (1)
  1. TECFIDERA [Suspect]
     Active Substance: DIMETHYL FUMARATE
     Indication: MULTIPLE SCLEROSIS
     Route: 048
     Dates: start: 201307

REACTIONS (8)
  - Anxiety [Unknown]
  - Vision blurred [Unknown]
  - Drug dose omission [Recovered/Resolved]
  - Mental disorder [Unknown]
  - Multiple sclerosis relapse [Unknown]
  - Muscle spasticity [Unknown]
  - Depression [Unknown]
  - Aphasia [Unknown]

NARRATIVE: CASE EVENT DATE: 201408
